FAERS Safety Report 5290172-1 (Version None)
Quarter: 2007Q2

REPORT INFORMATION
  Report Type: 
  Country: None (occurrence: None)
  Receive Date: 20070402
  Receipt Date: 20070322
  Transmission Date: 20071010
  Serious: Yes (Hospitalization)
  Sender: FDA-Public Use
  Company Number: 235992

PATIENT
  Age: 75 Year
  Sex: Female

DRUGS (9)
  1. AVASTIN [Suspect]
     Indication: COLON CANCER
     Dosage: 5 MG/KG, Q2W, INTRAVENOUS
     Route: 042
     Dates: start: 20060918, end: 20061127
  2. FLUOROURACIL [Suspect]
     Indication: COLON CANCER
     Dosage: SEE IMAGE
     Dates: start: 20060918, end: 20061129
  3. LEUCOVORIN CALCIUM [Suspect]
     Indication: COLON CANCER
     Dosage: 400 MG/M2, Q2W, INTRAVENOUS
     Route: 042
     Dates: start: 20060918, end: 20061127
  4. OXALIPLATIN [Suspect]
     Indication: COLON CANCER
     Dosage: 85 MG/M2, Q2W, INTRAVENOUS
     Route: 042
     Dates: start: 20060918, end: 20061127
  5. EMEND [Concomitant]
  6. KYTRIL [Concomitant]
  7. ATIVAN [Concomitant]
  8. IV HYDRATION (UNK INGREDIENTS) (INTRAVENOUS SOLUTION NOS) [Concomitant]
  9. ANTI-EMETIC COCKTAIL (ANTIEMETIC NOS) [Concomitant]

REACTIONS (11)
  - HYPOXIA [None]
  - LACTIC ACIDOSIS [None]
  - LOSS OF CONSCIOUSNESS [None]
  - METABOLIC ACIDOSIS [None]
  - MYOCARDIAL INFARCTION [None]
  - NAUSEA [None]
  - NEUTROPENIA [None]
  - NO THERAPEUTIC RESPONSE [None]
  - SEPSIS [None]
  - SOMNOLENCE [None]
  - VOMITING [None]
